FAERS Safety Report 9857106 (Version 2)
Quarter: 2014Q1

REPORT INFORMATION
  Report Type: Report from Study
  Country: NL (occurrence: NL)
  Receive Date: 20140130
  Receipt Date: 20140204
  Transmission Date: 20141002
  Serious: Yes (Hospitalization)
  Sender: FDA-Public Use
  Company Number: NL-TEVA-459526ISR

PATIENT
  Age: 34 Year
  Sex: Female

DRUGS (9)
  1. MYOCET [Suspect]
  2. PACLITAXEL [Suspect]
     Indication: BREAST CANCER METASTATIC
     Route: 042
     Dates: start: 20121112, end: 20130408
  3. BEVACIZUMAB [Suspect]
     Indication: BREAST CANCER METASTATIC
     Route: 042
     Dates: start: 20121112, end: 20131202
  4. PARACETAMOL [Concomitant]
     Dosage: 4000 MILLIGRAM DAILY;
     Dates: start: 20120101
  5. OXYCONTIN [Concomitant]
     Dosage: 20 MILLIGRAM DAILY;
     Dates: start: 20131129, end: 20131204
  6. OXYNORM [Concomitant]
     Dosage: 5 MILLIGRAM DAILY;
     Dates: start: 20131129
  7. MOVICOLON [Concomitant]
     Dates: start: 20131129
  8. OMEPRAZOL [Concomitant]
     Dosage: 40 MILLIGRAM DAILY;
  9. FRAXODI [Concomitant]
     Dates: start: 20130324

REACTIONS (3)
  - VIth nerve disorder [Recovered/Resolved with Sequelae]
  - Disease progression [Unknown]
  - Posterior reversible encephalopathy syndrome [Unknown]
